FAERS Safety Report 23949192 (Version 2)
Quarter: 2024Q4

REPORT INFORMATION
  Report Type: Spontaneous
  Country: DE (occurrence: DE)
  Receive Date: 20240607
  Receipt Date: 20241213
  Transmission Date: 20250114
  Serious: Yes (Other)
  Sender: ARGENX BVBA
  Company Number: DE-ARGENX-2024-ARGX-DE002442

PATIENT

DRUGS (2)
  1. EFGARTIGIMOD ALFA [Suspect]
     Active Substance: EFGARTIGIMOD ALFA
     Indication: Myasthenia gravis
     Dosage: UNK
     Route: 042
     Dates: start: 202402
  2. AZATHIOPRINE [Concomitant]
     Active Substance: AZATHIOPRINE
     Indication: Product used for unknown indication
     Dosage: UNK
     Route: 065

REACTIONS (15)
  - Dysphagia [Unknown]
  - Symptom recurrence [Unknown]
  - Eyelid ptosis [Unknown]
  - Vision blurred [Unknown]
  - Diplopia [Unknown]
  - Visual impairment [Unknown]
  - Mastication disorder [Unknown]
  - Dysarthria [Unknown]
  - Aphasia [Unknown]
  - Loss of personal independence in daily activities [Unknown]
  - Muscular weakness [Unknown]
  - Fall [Unknown]
  - Therapeutic response shortened [Unknown]
  - Therapeutic product effect decreased [Unknown]
  - Loss of therapeutic response [Unknown]
